FAERS Safety Report 20246298 (Version 2)
Quarter: 2022Q1

REPORT INFORMATION
  Report Type: Spontaneous
  Country: US (occurrence: None)
  Receive Date: 20211229
  Receipt Date: 20220111
  Transmission Date: 20220423
  Serious: No
  Sender: FDA-Public Use
  Company Number: 2021A867285

PATIENT
  Age: 980 Month
  Sex: Female
  Weight: 38.6 kg

DRUGS (1)
  1. BEVESPI AEROSPHERE [Suspect]
     Active Substance: FORMOTEROL FUMARATE\GLYCOPYRROLATE
     Dosage: 9MCG/4.8MCG, UNKNOWN FREQUENCY
     Route: 055

REACTIONS (6)
  - Arthralgia [Unknown]
  - Visual impairment [Unknown]
  - Device use issue [Unknown]
  - Wrong technique in device usage process [Unknown]
  - Device malfunction [Unknown]
  - Intentional device misuse [Unknown]

NARRATIVE: CASE EVENT DATE: 20211201
